FAERS Safety Report 10654141 (Version 3)
Quarter: 2014Q4

REPORT INFORMATION
  Report Type: Spontaneous
  Country: FI (occurrence: FI)
  Receive Date: 20141216
  Receipt Date: 20141225
  Transmission Date: 20150529
  Serious: Yes (Other)
  Sender: FDA-Public Use
  Company Number: PHHY2014FI156269

PATIENT
  Age: 45 Year
  Sex: Male

DRUGS (10)
  1. BISOPROLOL ORION [Concomitant]
     Indication: BLOOD PRESSURE
     Dosage: 1 DF, QD
     Route: 048
  2. BISOPROLOL ORION [Concomitant]
     Dosage: 2 UNK, UNK
     Route: 048
  3. TRILEPTAL [Suspect]
     Active Substance: OXCARBAZEPINE
     Indication: PARTIAL SEIZURES
     Dosage: 0.5 DF, BID
     Route: 048
     Dates: start: 20130401, end: 2013
  4. TRILEPTAL [Interacting]
     Active Substance: OXCARBAZEPINE
     Dosage: 1.5 DF, BID
     Route: 048
     Dates: start: 2013, end: 2013
  5. MAREVAN FORTE [Interacting]
     Active Substance: WARFARIN SODIUM
     Indication: AORTIC VALVE REPLACEMENT
     Dosage: 10 MG, QD
     Route: 048
     Dates: start: 20060126
  6. CEFTRIAXONE ORION [Concomitant]
     Indication: PNEUMONIA ASPIRATION
     Dosage: 1 DF, QD
     Route: 042
     Dates: start: 20130330, end: 20130402
  7. HYDANTIN [Concomitant]
     Indication: EPILEPSY
     Route: 048
     Dates: start: 20130330, end: 20130414
  8. TRILEPTAL [Interacting]
     Active Substance: OXCARBAZEPINE
     Dosage: 2 DF, BID
     Route: 048
     Dates: start: 2013
  9. MAREVAN FORTE [Interacting]
     Active Substance: WARFARIN SODIUM
     Dosage: UNK (DOSE INCREASED)
     Route: 048
  10. MAREVAN FORTE [Interacting]
     Active Substance: WARFARIN SODIUM
     Dosage: UNK (DOSE INCREASED)
     Route: 048

REACTIONS (4)
  - Blood pressure increased [Recovered/Resolved]
  - International normalised ratio decreased [Recovered/Resolved]
  - C-reactive protein increased [Unknown]
  - Drug interaction [Unknown]

NARRATIVE: CASE EVENT DATE: 2013
